FAERS Safety Report 7337122-1 (Version None)
Quarter: 2011Q1

REPORT INFORMATION
  Report Type: 
  Country: None (occurrence: None)
  Receive Date: 20110224
  Receipt Date: 20110215
  Transmission Date: 20110831
  Serious: Yes (Other)
  Sender: FDA-Public Use
  Company Number: DKLU1068491

PATIENT
  Age: 4 Year
  Sex: Female

DRUGS (1)
  1. SABRIL [Suspect]
     Indication: PRODUCT USED FOR UNKNOWN INDICATION
     Dosage: 750 MG MILLIGRAM(S), 2 IN 1 D, ORAL
     Route: 048

REACTIONS (1)
  - OPTIC NERVE DISORDER [None]
